FAERS Safety Report 17992652 (Version 1)
Quarter: 2020Q3

REPORT INFORMATION
  Report Type: Report from Study
  Country: PK (occurrence: PK)
  Receive Date: 20200707
  Receipt Date: 20200707
  Transmission Date: 20201103
  Serious: Yes (Death)
  Sender: FDA-Public Use
  Company Number: NVSC2020PK189399

PATIENT
  Age: 29 Year
  Sex: Female

DRUGS (1)
  1. ZOMETA [Suspect]
     Active Substance: ZOLEDRONIC ACID
     Indication: OSTEOPOROSIS
     Dosage: UNK, QMO (UNK 4MG/100ML (FORMULATION INJECTION)
     Route: 042
     Dates: start: 20200312, end: 20200317

REACTIONS (1)
  - Death [Fatal]

NARRATIVE: CASE EVENT DATE: 20200608
